FAERS Safety Report 15366324 (Version 2)
Quarter: 2019Q1

REPORT INFORMATION
  Report Type: Spontaneous
  Country: US (occurrence: US)
  Receive Date: 20180910
  Receipt Date: 20190129
  Transmission Date: 20190417
  Serious: No
  Sender: FDA-Public Use
  Company Number: US-SA-2018SA252000

PATIENT
  Age: 53 Year
  Sex: Female

DRUGS (20)
  1. TRAZODONE [Concomitant]
     Active Substance: TRAZODONE HYDROCHLORIDE
  2. SULFACET [SULFACETAMIDE SODIUM] [Concomitant]
  3. NAPROXEN. [Concomitant]
     Active Substance: NAPROXEN
  4. DUPIXENT [Suspect]
     Active Substance: DUPILUMAB
     Indication: DERMATITIS ATOPIC
     Dosage: 300 MG, QOW
     Route: 058
     Dates: start: 20180623
  5. BETAMETH DIPROPIONATE [Concomitant]
  6. PROAIR HFA [Concomitant]
     Active Substance: ALBUTEROL SULFATE
  7. TRIAMCINOLON E [Concomitant]
     Active Substance: CHLOROXINE\TRIAMCINOLONE ACETONIDE
  8. CEVIMELINE. [Concomitant]
     Active Substance: CEVIMELINE
  9. FEROSUL [Concomitant]
  10. ARIPIPRAZOLE. [Concomitant]
     Active Substance: ARIPIPRAZOLE
  11. CHANTIX [Concomitant]
     Active Substance: VARENICLINE TARTRATE
  12. CYANOCOBALAMIN. [Concomitant]
     Active Substance: CYANOCOBALAMIN
  13. MUPIROCIN. [Concomitant]
     Active Substance: MUPIROCIN
  14. OMEPRAZOLE. [Concomitant]
     Active Substance: OMEPRAZOLE
  15. SUCRALFATE. [Concomitant]
     Active Substance: SUCRALFATE
  16. CLONIDINE. [Concomitant]
     Active Substance: CLONIDINE
  17. GABAPENTIN. [Concomitant]
     Active Substance: GABAPENTIN
  18. NYSTATIN. [Concomitant]
     Active Substance: NYSTATIN
  19. PROCHLORPERAZ [Concomitant]
     Active Substance: PROCHLORPERAZINE MALEATE
  20. TACROLIMUS. [Concomitant]
     Active Substance: TACROLIMUS

REACTIONS (1)
  - Inappropriate schedule of product administration [Unknown]

NARRATIVE: CASE EVENT DATE: 20180831
